FAERS Safety Report 25654286 (Version 1)
Quarter: 2025Q3

REPORT INFORMATION
  Report Type: Spontaneous
  Country: CN (occurrence: CN)
  Receive Date: 20250807
  Receipt Date: 20250807
  Transmission Date: 20251020
  Serious: Yes (Hospitalization, Other)
  Sender: BAXTER
  Company Number: None

PATIENT
  Age: 58 Year
  Sex: Female
  Weight: 65 kg

DRUGS (9)
  1. CYCLOPHOSPHAMIDE [Suspect]
     Active Substance: CYCLOPHOSPHAMIDE
     Indication: Invasive breast carcinoma
     Dosage: 800 MG, QD (IVGTT, ONCE)
     Route: 041
     Dates: start: 20250613, end: 20250613
  2. CYCLOPHOSPHAMIDE [Suspect]
     Active Substance: CYCLOPHOSPHAMIDE
     Indication: Triple negative breast cancer
  3. DOCETAXEL [Suspect]
     Active Substance: DOCETAXEL
     Indication: Invasive breast carcinoma
     Dosage: 120 MG, QD (IVGTT ONCE)
     Route: 041
     Dates: start: 20250613, end: 20250613
  4. DOCETAXEL [Suspect]
     Active Substance: DOCETAXEL
     Indication: Triple negative breast cancer
  5. PIRARUBICIN HYDROCHLORIDE [Suspect]
     Active Substance: PIRARUBICIN HYDROCHLORIDE
     Indication: Invasive breast carcinoma
     Dosage: 80 MG, QD (IVGTT , ONCE)
     Route: 041
     Dates: start: 20250613, end: 20250613
  6. PIRARUBICIN HYDROCHLORIDE [Suspect]
     Active Substance: PIRARUBICIN HYDROCHLORIDE
     Indication: Triple negative breast cancer
  7. SODIUM CHLORIDE [Suspect]
     Active Substance: SODIUM CHLORIDE
     Indication: Medication dilution
     Dosage: 500 ML, QD (CYCLOPHOSPHAMIDE + NS) ( IVGTT, ONCE)
     Route: 041
     Dates: start: 20250613, end: 20250613
  8. SODIUM CHLORIDE [Suspect]
     Active Substance: SODIUM CHLORIDE
     Dosage: 500 ML, QD (DOCETAXEL + NS) (IVGTT, ONCE)
     Route: 041
     Dates: start: 20250613, end: 20250613
  9. DEXTROSE [Suspect]
     Active Substance: DEXTROSE MONOHYDRATE
     Indication: Medication dilution
     Dosage: 500 ML, QD (PIRARUBICIN + 5% GLUCOSE) (IVGTT, ONCE)
     Route: 041
     Dates: start: 20250613, end: 20250613

REACTIONS (4)
  - Pain in extremity [Recovered/Resolved]
  - Myelosuppression [Recovered/Resolved]
  - Asthenia [Recovered/Resolved]
  - Granulocyte count decreased [Recovered/Resolved]

NARRATIVE: CASE EVENT DATE: 20250621
